FAERS Safety Report 25112478 (Version 4)
Quarter: 2025Q2

REPORT INFORMATION
  Report Type: Spontaneous
  Country: DE (occurrence: DE)
  Receive Date: 20250324
  Receipt Date: 20250611
  Transmission Date: 20250717
  Serious: Yes (Death, Life-Threatening)
  Sender: ROCHE
  Company Number: DE-ROCHE-10000233066

PATIENT
  Age: 44 Year
  Sex: Male

DRUGS (1)
  1. OCREVUS [Suspect]
     Active Substance: OCRELIZUMAB
     Indication: Primary progressive multiple sclerosis
     Route: 065

REACTIONS (5)
  - Adenovirus infection [Fatal]
  - Respiratory failure [Unknown]
  - Renal failure [Unknown]
  - Hypogammaglobulinaemia [Unknown]
  - Blood immunoglobulin G decreased [Recovered/Resolved]
